FAERS Safety Report 6938018-7 (Version None)
Quarter: 2010Q3

REPORT INFORMATION
  Report Type: 
  Country: None (occurrence: None)
  Receive Date: 20100824
  Receipt Date: 20100809
  Transmission Date: 20110219
  Serious: Yes (Other)
  Sender: FDA-Public Use
  Company Number: US-RB-013365-10

PATIENT
  Age: 88 Year
  Sex: Male

DRUGS (1)
  1. MUCINEX DM [Suspect]
     Dosage: HE TOOK ONE PILL AT NIGHT AND ONE AT MORNING FOR ONE DAY
     Route: 048
     Dates: start: 20100803

REACTIONS (2)
  - DIARRHOEA [None]
  - MELAENA [None]
